FAERS Safety Report 11454922 (Version 1)
Quarter: 2015Q3

REPORT INFORMATION
  Report Type: Spontaneous
  Country: US (occurrence: US)
  Receive Date: 20150831
  Receipt Date: 20150831
  Transmission Date: 20151125
  Serious: No
  Sender: FDA-Public Use
  Company Number: US-ELI_LILLY_AND_COMPANY-US201005006399

PATIENT
  Age: 27 Year
  Sex: Female

DRUGS (3)
  1. WELLBUTRIN [Concomitant]
     Active Substance: BUPROPION HYDROCHLORIDE
     Dosage: 150 MG, UNK
     Dates: start: 201005, end: 201005
  2. CYMBALTA [Suspect]
     Active Substance: DULOXETINE HYDROCHLORIDE
     Indication: POSTPARTUM DEPRESSION
     Dosage: 30 MG, DAILY (1/D)
     Dates: start: 20100520, end: 20100520
  3. WELLBUTRIN [Concomitant]
     Active Substance: BUPROPION HYDROCHLORIDE
     Indication: POSTPARTUM DEPRESSION
     Dosage: 300 MG, UNK
     Dates: end: 201005

REACTIONS (12)
  - Insomnia [Unknown]
  - Malaise [Unknown]
  - Drug ineffective [Recovered/Resolved]
  - Hyperhidrosis [Unknown]
  - Retching [Unknown]
  - Confusional state [Unknown]
  - Paraesthesia [Unknown]
  - Nausea [Unknown]
  - Dyskinesia [Unknown]
  - Tremor [Unknown]
  - Memory impairment [Unknown]
  - Fatigue [Unknown]

NARRATIVE: CASE EVENT DATE: 201005
